FAERS Safety Report 6052920-2 (Version None)
Quarter: 2009Q1

REPORT INFORMATION
  Report Type: 
  Country: None (occurrence: None)
  Receive Date: 20090127
  Receipt Date: 20080912
  Transmission Date: 20090719
  Serious: No
  Sender: FDA-Public Use
  Company Number: US-ABBOTT-08P-163-0475972-00

PATIENT
  Sex: Male
  Weight: 106.24 kg

DRUGS (6)
  1. LUPRON DEPOT [Suspect]
     Indication: PROSTATE CANCER
     Route: 030
     Dates: start: 20080206
  2. VENLAFAXINE [Concomitant]
     Indication: DEPRESSION
     Route: 048
  3. PRINZIDE [Concomitant]
     Indication: HYPERTENSION
     Dosage: 20/25 MG
     Route: 048
  4. BUPROPION HCL [Concomitant]
     Indication: DEPRESSION
     Dosage: ONE HALF TABLET PER DAY
     Route: 048
  5. ATENOLOL [Concomitant]
     Indication: HYPERTENSION
     Route: 048
  6. OTHER UNSPECIFIED MEDICATIONS [Concomitant]
     Indication: DRUG USE FOR UNKNOWN INDICATION

REACTIONS (1)
  - HYPOAESTHESIA [None]
